FAERS Safety Report 4982068-7 (Version None)
Quarter: 2006Q2

REPORT INFORMATION
  Report Type: 
  Country: None (occurrence: None)
  Receive Date: 20060421
  Receipt Date: 20060412
  Transmission Date: 20061013
  Serious: Yes (Hospitalization, Other)
  Sender: FDA-Public Use
  Company Number: 2006052123

PATIENT
  Age: 72 Year
  Sex: Male
  Weight: 77.1115 kg

DRUGS (8)
  1. NORVASC [Suspect]
     Indication: ILL-DEFINED DISORDER
     Dosage: 5 MG (5 MG, 1 IN 1 D), ORAL
     Route: 048
     Dates: start: 20060201
  2. ALLOPURINOL [Concomitant]
  3. GLUCOPHAGE [Concomitant]
  4. DIABENASE (CHLORPROPAMIDE) [Concomitant]
  5. FOLIC ACID [Concomitant]
  6. DIOVAN [Concomitant]
  7. ASPIRIN [Concomitant]
  8. AGGRENOX [Concomitant]

REACTIONS (7)
  - ASPIRATION [None]
  - BRAIN STEM SYNDROME [None]
  - CEREBROVASCULAR ACCIDENT [None]
  - DRUG INEFFECTIVE [None]
  - DYSPHAGIA [None]
  - VOMITING [None]
  - WEIGHT DECREASED [None]
